FAERS Safety Report 5222336-7 (Version None)
Quarter: 2007Q1

REPORT INFORMATION
  Report Type: 
  Country: None (occurrence: None)
  Receive Date: 20070129
  Receipt Date: 20070119
  Transmission Date: 20070707
  Serious: Yes (Hospitalization)
  Sender: FDA-Public Use
  Company Number: US-MERCK-0701USA03899

PATIENT
  Age: 77 Year
  Sex: Male

DRUGS (4)
  1. CANCIDAS [Suspect]
     Indication: FUNGAL INFECTION
     Route: 042
  2. CANCIDAS [Suspect]
     Route: 042
  3. PHENYTOIN [Suspect]
     Route: 065
  4. LINEZOLID [Concomitant]
     Indication: ENTEROCOCCAL INFECTION
     Route: 042

REACTIONS (15)
  - ABDOMINAL INFECTION [None]
  - BACTERAEMIA [None]
  - CANDIDIASIS [None]
  - CATHETER RELATED INFECTION [None]
  - DEEP VEIN THROMBOSIS [None]
  - DRUG INEFFECTIVE [None]
  - DRUG INTERACTION [None]
  - ENTEROCOCCAL INFECTION [None]
  - FUNGAEMIA [None]
  - INCORRECT DOSE ADMINISTERED [None]
  - KLEBSIELLA INFECTION [None]
  - MULTI-ORGAN FAILURE [None]
  - PATHOGEN RESISTANCE [None]
  - PNEUMONIA [None]
  - RESPIRATORY DISTRESS [None]
